FAERS Safety Report 9252295 (Version 1)
Quarter: 2013Q2

REPORT INFORMATION
  Report Type: Spontaneous
  Country: US (occurrence: US)
  Receive Date: 20130424
  Receipt Date: 20130424
  Transmission Date: 20140414
  Serious: Yes (Other)
  Sender: FDA-Public Use
  Company Number: US-BAYER-2013-048874

PATIENT
  Sex: Male

DRUGS (1)
  1. BAYER ASPIRIN REGIMEN ADULT LOW STRENGTH [Suspect]

REACTIONS (3)
  - Pulmonary oedema [None]
  - Abdominal pain upper [None]
  - Nervousness [None]
